FAERS Safety Report 8020893-9 (Version None)
Quarter: 2011Q4

REPORT INFORMATION
  Report Type: 
  Country: None (occurrence: None)
  Receive Date: 20111228
  Receipt Date: 20111219
  Transmission Date: 20120403
  Serious: Yes (Other)
  Sender: FDA-Public Use
  Company Number: AUR-APL-2011-06235

PATIENT
  Age: 53 Year
  Sex: Male

DRUGS (5)
  1. DANTROLENE SODIUM [Concomitant]
  2. BROMOCRIPTINE MESYLATE [Concomitant]
  3. BENZODIAZEPINE (BENZODIAZEPINE DERIVATIVES) [Concomitant]
  4. CYCLOBENZAPRINE [Suspect]
     Indication: BACK PAIN
  5. HYDROCODONE BITARTRATE + ACETAMINOPHEN [Suspect]
     Indication: BACK PAIN

REACTIONS (9)
  - HYPERHIDROSIS [None]
  - TACHYCARDIA [None]
  - LEUKOCYTOSIS [None]
  - MUSCLE RIGIDITY [None]
  - DEPRESSED LEVEL OF CONSCIOUSNESS [None]
  - PYREXIA [None]
  - TREMOR [None]
  - BODY TEMPERATURE INCREASED [None]
  - TACHYPNOEA [None]
